FAERS Safety Report 4340518-3 (Version None)
Quarter: 2004Q2

REPORT INFORMATION
  Report Type: 
  Country: None (occurrence: None)
  Receive Date: 20040414
  Receipt Date: 20040401
  Transmission Date: 20050107
  Serious: Yes (Hospitalization)
  Sender: FDA-Public Use
  Company Number: 2004022111

PATIENT
  Age: 47 Year
  Sex: Female

DRUGS (5)
  1. ATARAX [Suspect]
     Indication: ANXIETY
     Dosage: ORAL
     Route: 048
     Dates: start: 20040226, end: 20040226
  2. TOPIRAMATE [Concomitant]
  3. TIANEPTINE (TIANEPTINE) [Concomitant]
  4. HYDROXYCHLOROQUINE SULFATE (HYDROXYCHLOROQUINE SULFATE) [Concomitant]
  5. ALPRAZOLAM [Concomitant]

REACTIONS (3)
  - ANGIONEUROTIC OEDEMA [None]
  - CHOKING SENSATION [None]
  - PRURIGO [None]
